FAERS Safety Report 9564109 (Version 2)
Quarter: 2013Q3

REPORT INFORMATION
  Report Type: Spontaneous
  Country: GB (occurrence: GB)
  Receive Date: 20130929
  Receipt Date: 20130929
  Transmission Date: 20140515
  Serious: Yes (Hospitalization, Other)
  Sender: FDA-Public Use
  Company Number: GB-009507513-1212GBR001464

PATIENT
  Age: 55 Year
  Sex: Female
  Weight: 75 kg

DRUGS (15)
  1. PEGINTERFERON ALFA-2B [Suspect]
     Dosage: UNK, QW
     Route: 058
     Dates: start: 20121023, end: 20121207
  2. RIBAVIRIN [Suspect]
     Indication: CHRONIC HEPATITIS C
     Dosage: 1000 MG IN 1 DAY, 400 MG IN THE MORNING, 600MG IN THE EVENING
     Route: 048
     Dates: start: 20121023, end: 20121120
  3. RIBAVIRIN [Suspect]
     Dosage: 400 MG, BID
     Route: 048
     Dates: start: 20121204, end: 20121214
  4. RIBAVIRIN [Suspect]
     Dosage: 600 MG, IN 1 DAY, (200 MG IN THE MORNING, 400 MG IN THE EVENING)
     Route: 048
     Dates: start: 20121214, end: 20130115
  5. RIBAVIRIN [Suspect]
     Dosage: 400 MG, BID
     Route: 048
     Dates: start: 20130115, end: 20130131
  6. RIBAVIRIN [Suspect]
     Dosage: 600 MG, IN 1 DAY ( 200 MG IN THE MORNING, 400 MG IN THE EVENING)
     Route: 048
     Dates: start: 20130131, end: 20130212
  7. RIBAVIRIN [Suspect]
     Dosage: 400 MG, BID
     Route: 048
     Dates: start: 20130212, end: 20130227
  8. RIBAVIRIN [Suspect]
     Dosage: 1000 MG IN 1 DAY, (400 MG IN THE MORNING, 600 MG IN THE EVENING)
     Route: 048
     Dates: start: 20130227, end: 20130503
  9. TELAPREVIR [Suspect]
     Indication: CHRONIC HEPATITIS C
     Dosage: 750 MG, 3 IN 1 DAY
     Route: 048
     Dates: start: 20121023, end: 20121207
  10. PARACETAMOL [Concomitant]
     Dosage: 1 G,3 IN DAY
  11. TRIMETHOPRIM [Concomitant]
     Dosage: UNK
     Dates: start: 20121113
  12. CETRIZINE [Concomitant]
     Dosage: 10 MG, PRN
  13. FOSTAIR [Concomitant]
     Dosage: 100/6 DAILY DOSE, INHALATION
     Route: 055
  14. NOVO SALMOL (ALBUTEROL SULFATE) [Concomitant]
     Route: 055
  15. ONDANSETRON [Concomitant]
     Indication: NAUSEA
     Route: 048

REACTIONS (25)
  - Headache [Not Recovered/Not Resolved]
  - Vertigo [Not Recovered/Not Resolved]
  - Nausea [Not Recovered/Not Resolved]
  - Renal failure acute [Recovered/Resolved]
  - Urinary tract infection [Recovered/Resolved]
  - Pharyngitis [Recovered/Resolved]
  - Nausea [Recovering/Resolving]
  - Vomiting [Recovering/Resolving]
  - Dehydration [Unknown]
  - Rash [Recovering/Resolving]
  - Haemorrhoids [Unknown]
  - Malaise [Unknown]
  - Hot flush [Not Recovered/Not Resolved]
  - Dizziness [Not Recovered/Not Resolved]
  - Chills [Not Recovered/Not Resolved]
  - Eczema [Recovering/Resolving]
  - Malaise [Not Recovered/Not Resolved]
  - Anaemia [Unknown]
  - Cystitis [Unknown]
  - Oral candidiasis [Unknown]
  - Proctalgia [Unknown]
  - Fatigue [Unknown]
  - Pain in extremity [Unknown]
  - Headache [Unknown]
  - Painful defaecation [Unknown]
